FAERS Safety Report 4268899-X (Version None)
Quarter: 2004Q1

REPORT INFORMATION
  Report Type: 
  Country: None (occurrence: None)
  Receive Date: 20040113
  Receipt Date: 20031022
  Transmission Date: 20041129
  Serious: Yes (Death, Hospitalization)
  Sender: FDA-Public Use
  Company Number: CH-ROCHE-349731

PATIENT
  Age: 66 Year

DRUGS (7)
  1. CAPECITABINE [Suspect]
     Dosage: 26,600 MG PER CYCLE.  INTERMITTENT THERAPY OF TWO WEEKS AND ONE WEEK OFF.
     Route: 048
     Dates: start: 20030520
  2. VINORELBINE [Suspect]
     Dosage: 70 MG PER CYCLE.  GIVEN ON DAY ONE AND EIGHT OF A THREE WEEK CYCLE.
     Route: 042
     Dates: start: 20030520
  3. OEDEMEX [Concomitant]
     Route: 048
     Dates: start: 20030915
  4. ATARAX [Concomitant]
     Route: 048
     Dates: start: 20030715, end: 20031017
  5. LORAZEPAM [Concomitant]
     Route: 048
  6. ZURCAL [Concomitant]
     Route: 048
     Dates: start: 20030915, end: 20031017
  7. ACETALGIN [Concomitant]
     Route: 048
     Dates: start: 20030701

REACTIONS (3)
  - DISEASE PROGRESSION [None]
  - PATHOLOGICAL FRACTURE [None]
  - RENAL FAILURE [None]
